APPROVED DRUG PRODUCT: FENOFIBRATE (MICRONIZED)
Active Ingredient: FENOFIBRATE
Strength: 67MG
Dosage Form/Route: CAPSULE;ORAL
Application: A205566 | Product #001 | TE Code: AB
Applicant: GLENMARK PHARMACEUTICALS LTD
Approved: Apr 7, 2017 | RLD: No | RS: No | Type: RX